FAERS Safety Report 4986100-6 (Version None)
Quarter: 2006Q2

REPORT INFORMATION
  Report Type: 
  Country: None (occurrence: None)
  Receive Date: 20060428
  Receipt Date: 20060126
  Transmission Date: 20061013
  Serious: Yes (Hospitalization)
  Sender: FDA-Public Use
  Company Number: AU-AVENTIS-200610833GDDC

PATIENT

DRUGS (16)
  1. TAXOTERE [Suspect]
     Indication: GASTROOESOPHAGEAL CANCER
     Route: 042
     Dates: start: 20060113, end: 20060113
  2. TAXOTERE [Suspect]
     Route: 042
     Dates: start: 20060203, end: 20060203
  3. TAXOTERE [Suspect]
     Route: 042
     Dates: start: 20060210, end: 20060210
  4. XELODA [Suspect]
     Indication: GASTROOESOPHAGEAL CANCER
     Route: 048
     Dates: start: 20060113, end: 20060124
  5. XELODA [Suspect]
     Route: 048
     Dates: start: 20060203, end: 20060217
  6. ONDANSETRON [Concomitant]
     Route: 042
     Dates: start: 20060203, end: 20060206
  7. MORPHINE [Concomitant]
     Dates: start: 20060203, end: 20060203
  8. DEXAMETHASONE [Concomitant]
     Route: 042
     Dates: start: 20060203, end: 20060206
  9. ACETAMINOPHEN [Concomitant]
     Route: 048
     Dates: start: 20060207
  10. LORAZEPAM [Concomitant]
     Route: 048
     Dates: start: 20060205, end: 20060205
  11. HALOPERIDOL [Concomitant]
     Route: 048
     Dates: start: 20060203, end: 20060203
  12. HALOPERIDOL [Concomitant]
     Route: 048
     Dates: start: 20060204
  13. MORPHINE MIXTURE [Concomitant]
     Route: 048
     Dates: start: 20060204
  14. PROCHLORPERAZINE [Concomitant]
     Indication: PROPHYLAXIS
     Dosage: DOSE: 25 MG
     Route: 054
     Dates: start: 20060207
  15. ENDONE [Concomitant]
     Indication: PROPHYLAXIS
     Dosage: DOSE: 10 MG
     Route: 048
     Dates: start: 20060209
  16. MAXOLON [Concomitant]
     Indication: PROPHYLAXIS
     Dosage: DOSE: 10 MG
     Route: 048
     Dates: start: 20060209

REACTIONS (5)
  - DIARRHOEA [None]
  - DISEASE PROGRESSION [None]
  - DRUG TOLERANCE DECREASED [None]
  - NAUSEA [None]
  - VOMITING [None]
